FAERS Safety Report 7038351-7 (Version None)
Quarter: 2010Q4

REPORT INFORMATION
  Report Type: 
  Country: None (occurrence: None)
  Receive Date: 20101011
  Receipt Date: 20091111
  Transmission Date: 20110411
  Serious: No
  Sender: FDA-Public Use
  Company Number: US-PFIZER INC-2009264510

PATIENT
  Sex: Female
  Weight: 95.3 kg

DRUGS (3)
  1. GABAPENTIN [Suspect]
     Indication: ARTHRALGIA
     Dosage: UNK
  2. GABAPENTIN [Suspect]
     Indication: PAIN IN EXTREMITY
  3. CARDEC [Concomitant]
     Indication: CARDIAC DISORDER

REACTIONS (1)
  - DRUG INEFFECTIVE [None]
